FAERS Safety Report 24291993 (Version 1)
Quarter: 2024Q3

REPORT INFORMATION
  Report Type: Spontaneous
  Country: US (occurrence: US)
  Receive Date: 20240906
  Receipt Date: 20240906
  Transmission Date: 20241017
  Serious: Yes (Death, Hospitalization, Other)
  Sender: ASTELLAS
  Company Number: US-ROCHE-10000071229

PATIENT
  Age: 29 Year
  Sex: Male
  Weight: 79 kg

DRUGS (12)
  1. ERLOTINIB [Suspect]
     Active Substance: ERLOTINIB
     Indication: Depression
     Route: 065
  2. ERLOTINIB [Suspect]
     Active Substance: ERLOTINIB
     Indication: Insomnia
  3. ERLOTINIB [Suspect]
     Active Substance: ERLOTINIB
     Indication: Non-small cell lung cancer
  4. ERLOTINIB [Suspect]
     Active Substance: ERLOTINIB
     Indication: Pain
  5. ERLOTINIB [Suspect]
     Active Substance: ERLOTINIB
     Indication: Renal failure
  6. ERLOTINIB [Suspect]
     Active Substance: ERLOTINIB
     Indication: Routine health maintenance
  7. SORAFENIB [Suspect]
     Active Substance: SORAFENIB
     Indication: Depression
     Route: 065
  8. SORAFENIB [Suspect]
     Active Substance: SORAFENIB
     Indication: Insomnia
  9. SORAFENIB [Suspect]
     Active Substance: SORAFENIB
     Indication: Non-small cell lung cancer
  10. SORAFENIB [Suspect]
     Active Substance: SORAFENIB
     Indication: Pain
  11. SORAFENIB [Suspect]
     Active Substance: SORAFENIB
     Indication: Renal failure
  12. SORAFENIB [Suspect]
     Active Substance: SORAFENIB
     Indication: Routine health maintenance

REACTIONS (4)
  - Death [Fatal]
  - Pulmonary embolism [Unknown]
  - Disease progression [Unknown]
  - Deep vein thrombosis [Unknown]

NARRATIVE: CASE EVENT DATE: 20100204
